FAERS Safety Report 4697752-2 (Version None)
Quarter: 2005Q2

REPORT INFORMATION
  Report Type: 
  Country: None (occurrence: None)
  Receive Date: 20050621
  Receipt Date: 20050614
  Transmission Date: 20051028
  Serious: Yes (Hospitalization, Disabling, Other)
  Sender: FDA-Public Use
  Company Number: 200416274BCC

PATIENT
  Age: 65 Year
  Sex: Male
  Weight: 103.8737 kg

DRUGS (8)
  1. ALEVE [Suspect]
     Indication: PAIN
     Dosage: 440 MG, TOTAL DAILY, ORAL
     Route: 048
  2. MULTI-VITAMIN [Concomitant]
  3. METFORMIN [Concomitant]
  4. LISINOPRIL [Concomitant]
  5. GLYBURIDE [Concomitant]
  6. SIMVASTATIN [Concomitant]
  7. DILTIAZEM [Concomitant]
  8. ASPIRIN [Concomitant]

REACTIONS (17)
  - ACUTE MYOCARDIAL INFARCTION [None]
  - ANAEMIA [None]
  - BLOOD GLUCOSE INCREASED [None]
  - BRADYCARDIA [None]
  - CARDIAC FAILURE CONGESTIVE [None]
  - CARDIOMEGALY [None]
  - CORONARY ARTERY DISEASE [None]
  - CORONARY ARTERY OCCLUSION [None]
  - CORONARY ARTERY STENOSIS [None]
  - HYPERTENSIVE HEART DISEASE [None]
  - HYPOTENSION [None]
  - LUNG NEOPLASM [None]
  - MYOCARDIAL INFARCTION [None]
  - PULMONARY CONGESTION [None]
  - PULMONARY VASCULAR DISORDER [None]
  - PYREXIA [None]
  - VENTRICULAR TACHYCARDIA [None]
